FAERS Safety Report 9556302 (Version 1)
Quarter: 2013Q3

REPORT INFORMATION
  Report Type: Spontaneous
  Country: FR (occurrence: FR)
  Receive Date: 20130926
  Receipt Date: 20130926
  Transmission Date: 20140515
  Serious: Yes (Hospitalization)
  Sender: FDA-Public Use
  Company Number: FR-JNJFOC-20130911283

PATIENT
  Age: 60 Year
  Sex: Female

DRUGS (5)
  1. HALDOL [Suspect]
     Indication: PSYCHOTIC DISORDER
     Dosage: LONG-TERM TREATMENT
     Route: 048
  2. ARTANE [Interacting]
     Indication: PSYCHOTIC DISORDER
     Route: 048
  3. ARTANE [Interacting]
     Indication: PSYCHOTIC DISORDER
     Route: 048
  4. NOZINAN [Interacting]
     Indication: PSYCHOTIC DISORDER
     Dosage: 15 DROPS
     Route: 048
  5. TRANXENE [Interacting]
     Indication: PSYCHOTIC DISORDER
     Route: 048

REACTIONS (4)
  - Fall [Recovered/Resolved]
  - Drug interaction [Unknown]
  - Malaise [Recovered/Resolved]
  - Hyponatraemia [Recovered/Resolved]
